FAERS Safety Report 23580997 (Version 1)
Quarter: 2024Q1

REPORT INFORMATION
  Report Type: Report from Study
  Country: US (occurrence: US)
  Receive Date: 20240229
  Receipt Date: 20240229
  Transmission Date: 20240410
  Serious: Yes (Other)
  Sender: FDA-Public Use
  Company Number: US-002147023-NVSC2024US039849

PATIENT
  Sex: Female

DRUGS (1)
  1. KESIMPTA [Suspect]
     Active Substance: OFATUMUMAB
     Indication: Relapsing multiple sclerosis
     Dosage: UNK
     Route: 065

REACTIONS (7)
  - Urinary retention [Unknown]
  - Urinary tract infection [Unknown]
  - Nervous system disorder [Unknown]
  - Aphasia [Unknown]
  - Fatigue [Unknown]
  - Hypersomnia [Unknown]
  - Stress [Unknown]
